FAERS Safety Report 17486087 (Version 1)
Quarter: 2020Q1

REPORT INFORMATION
  Report Type: Spontaneous
  Country: US (occurrence: US)
  Receive Date: 20200303
  Receipt Date: 20200303
  Transmission Date: 20200409
  Serious: No
  Sender: FDA-Public Use
  Company Number: US-GLENMARK PHARMACEUTICALS-2019GMK045224

PATIENT

DRUGS (2)
  1. EFUDEX [Suspect]
     Active Substance: FLUOROURACIL
     Indication: PRODUCT USED FOR UNKNOWN INDICATION
     Dosage: UNK
     Route: 065
  2. CALCIPOTRIENE CREAM 0.005% [Suspect]
     Active Substance: CALCIPOTRIENE
     Indication: SKIN CANCER
     Dosage: UNK, 1 APPLICATION BID
     Route: 061
     Dates: start: 20191226, end: 20200102

REACTIONS (5)
  - Product storage error [Unknown]
  - Product administration error [Unknown]
  - Erythema [Unknown]
  - Blister [Unknown]
  - Product use in unapproved indication [Unknown]
